FAERS Safety Report 8406398-1 (Version None)
Quarter: 2012Q2

REPORT INFORMATION
  Report Type: 
  Country: None (occurrence: None)
  Receive Date: 20120604
  Receipt Date: 20120525
  Transmission Date: 20120825
  Serious: Yes (Death, Hospitalization, Other)
  Sender: FDA-Public Use
  Company Number: FR-BRISTOL-MYERS SQUIBB COMPANY-16638405

PATIENT
  Age: 85 Year
  Sex: Female

DRUGS (7)
  1. ACETAMINOPHEN [Concomitant]
     Dosage: 1 DF: 500 UNIT NOS DOSAGE:2.2.2
     Dates: start: 20111201
  2. LASIX [Concomitant]
     Dosage: STRENGTH: SPECIAL 500MG, SCORED TABLET DOSAGE: 0.25/0.25/0
     Route: 048
     Dates: start: 20111201
  3. BISOPROLOL FUMARATE [Concomitant]
     Dosage: 5MG FILM-COATED SCORED TABLETS
     Route: 048
     Dates: start: 20111201
  4. ZOLPIDEM [Concomitant]
     Dosage: 1 DF: 10 UNIT NOS
     Dates: start: 20111201
  5. COUMADIN [Suspect]
     Route: 048
     Dates: end: 20120227
  6. ATARAX [Concomitant]
     Dosage: 1 DF: 25 UNIT NOS
     Dates: start: 20111201
  7. OMEPRAZOLE [Concomitant]
     Dosage: 1 DF: 10 UNIT NOS
     Dates: start: 20111201

REACTIONS (5)
  - RECTAL HAEMORRHAGE [None]
  - ANAEMIA [None]
  - EPISTAXIS [None]
  - PNEUMONIA [None]
  - HYPOTENSION [None]
